FAERS Safety Report 10509989 (Version 2)
Quarter: 2022Q4

REPORT INFORMATION
  Report Type: Report from Study
  Country: RU (occurrence: RU)
  Receive Date: 20141010
  Receipt Date: 20221230
  Transmission Date: 20230113
  Serious: Yes (Hospitalization)
  Sender: FDA-Public Use
  Company Number: RU-SHIRE-RU201406658

PATIENT
  Age: 5 Year
  Sex: Male

DRUGS (3)
  1. IDURSULFASE [Suspect]
     Active Substance: IDURSULFASE
     Indication: Mucopolysaccharidosis II
     Dosage: 0.5 MILLIGRAM/KILOGRAM, 1/WEEK
     Route: 042
     Dates: start: 201107
  2. DEXAMETHASONE [Concomitant]
     Active Substance: DEXAMETHASONE
     Indication: Premedication
     Dosage: UNK
     Route: 042
     Dates: start: 201107, end: 201107
  3. CHLOROPYRAMINE [Concomitant]
     Active Substance: CHLOROPYRAMINE
     Indication: Premedication
     Dosage: UNK
     Route: 042
     Dates: start: 201107, end: 201107

REACTIONS (1)
  - Adenoidal disorder [Recovered/Resolved]

NARRATIVE: CASE EVENT DATE: 20130703
